FAERS Safety Report 9375563 (Version 2)
Quarter: 2013Q3

REPORT INFORMATION
  Report Type: Spontaneous
  Country: FR (occurrence: FR)
  Receive Date: 20130628
  Receipt Date: 20130719
  Transmission Date: 20140515
  Serious: Yes (Life-Threatening, Other)
  Sender: FDA-Public Use
  Company Number: FR-JNJFOC-20130616713

PATIENT
  Age: 29 Year
  Sex: Male
  Weight: 68 kg

DRUGS (6)
  1. REMICADE [Suspect]
     Indication: PSORIATIC ARTHROPATHY
     Dosage: DAY 15
     Route: 042
     Dates: start: 20130529, end: 20130529
  2. REMICADE [Suspect]
     Indication: PSORIATIC ARTHROPATHY
     Dosage: DAY 0
     Route: 042
     Dates: start: 20130515
  3. REMICADE [Suspect]
     Indication: PSORIASIS
     Dosage: DAY 0
     Route: 042
     Dates: start: 20130515
  4. REMICADE [Suspect]
     Indication: PSORIASIS
     Dosage: DAY 15
     Route: 042
     Dates: start: 20130529, end: 20130529
  5. SOLU-MEDROL [Concomitant]
     Indication: PREMEDICATION
     Route: 065
  6. POLARAMIN [Concomitant]
     Indication: PREMEDICATION
     Route: 065

REACTIONS (5)
  - Hypersensitivity [Recovered/Resolved]
  - Rash erythematous [Recovered/Resolved]
  - Conjunctival hyperaemia [Recovered/Resolved]
  - Pyrexia [Recovered/Resolved]
  - Infusion related reaction [Recovered/Resolved]
